FAERS Safety Report 8099971-4 (Version None)
Quarter: 2012Q1

REPORT INFORMATION
  Report Type: 
  Country: None (occurrence: None)
  Receive Date: 20120129
  Receipt Date: 20111128
  Transmission Date: 20120608
  Serious: No
  Sender: FDA-Public Use
  Company Number: US-ABBOTT-11P-163-0878474-00

PATIENT
  Sex: Female

DRUGS (2)
  1. HUMIRA [Suspect]
     Indication: RHEUMATOID ARTHRITIS
     Dates: start: 20110609
  2. AMLODIPINE [Concomitant]
     Indication: HYPERTENSION
     Dates: start: 20090101

REACTIONS (3)
  - PAIN IN EXTREMITY [None]
  - ARTHRALGIA [None]
  - DRUG DOSE OMISSION [None]
